FAERS Safety Report 17752714 (Version 1)
Quarter: 2020Q2

REPORT INFORMATION
  Report Type: Spontaneous
  Country: US (occurrence: US)
  Receive Date: 20200506
  Receipt Date: 20200506
  Transmission Date: 20200714
  Serious: Yes (Hospitalization)
  Sender: FDA-Public Use
  Company Number: US-PRINSTON PHARMACEUTICAL INC.-2020PRN00143

PATIENT
  Age: 45 Year
  Sex: Male
  Weight: 61.22 kg

DRUGS (3)
  1. LIPITOR [Concomitant]
     Active Substance: ATORVASTATIN CALCIUM
  2. DONEPEZIL HYDROCHLORIDE. [Suspect]
     Active Substance: DONEPEZIL HYDROCHLORIDE
     Indication: TREMOR
     Dosage: 5 MG, 1X/DAY
     Route: 048
     Dates: start: 20200422, end: 20200424
  3. ATIVAN [Concomitant]
     Active Substance: LORAZEPAM

REACTIONS (7)
  - Dehydration [Recovered/Resolved]
  - Hyperhidrosis [Unknown]
  - Rhabdomyolysis [Recovering/Resolving]
  - Pyrexia [Recovered/Resolved]
  - Musculoskeletal stiffness [Not Recovered/Not Resolved]
  - Muscle rigidity [Unknown]
  - Off label use [Recovered/Resolved]

NARRATIVE: CASE EVENT DATE: 20200422
